FAERS Safety Report 15936501 (Version 2)
Quarter: 2019Q1

REPORT INFORMATION
  Report Type: Spontaneous
  Country: US (occurrence: US)
  Receive Date: 20190208
  Receipt Date: 20190307
  Transmission Date: 20190417
  Serious: No
  Sender: FDA-Public Use
  Company Number: US-ASTRAZENECA-2019SE13323

PATIENT
  Sex: Male

DRUGS (1)
  1. PULMICORT FLEXHALER [Suspect]
     Active Substance: BUDESONIDE
     Indication: COUGH
     Route: 055
     Dates: start: 20190116

REACTIONS (5)
  - Device malfunction [Unknown]
  - Product dose omission [Unknown]
  - Product use in unapproved indication [Not Recovered/Not Resolved]
  - Cough [Unknown]
  - Off label use [Not Recovered/Not Resolved]
